FAERS Safety Report 4393590-9 (Version None)
Quarter: 2004Q3

REPORT INFORMATION
  Report Type: 
  Country: None (occurrence: None)
  Receive Date: 20040701
  Receipt Date: 20040618
  Transmission Date: 20050211
  Serious: Yes (Death)
  Sender: FDA-Public Use
  Company Number: 04P-144-0264220-00

PATIENT
  Age: 33 Year
  Sex: Male

DRUGS (3)
  1. KALETRA [Suspect]
     Indication: HIV INFECTION
     Dosage: 3 CAPSULES, 2 IN 1 D, ORAL
     Route: 048
     Dates: start: 20030222
  2. DIDANOSINA (DIDANOSINE) [Concomitant]
  3. LAMIVUDINA (LAMIVUDINE) [Concomitant]

REACTIONS (1)
  - DEATH [None]
